FAERS Safety Report 7007294-7 (Version None)
Quarter: 2010Q3

REPORT INFORMATION
  Report Type: 
  Country: None (occurrence: None)
  Receive Date: 20100922
  Receipt Date: 20100914
  Transmission Date: 20110219
  Serious: Yes (Other)
  Sender: FDA-Public Use
  Company Number: PHHY2010FR39487

PATIENT
  Sex: Female
  Weight: 40 kg

DRUGS (5)
  1. FEMARA [Suspect]
     Indication: BREAST CANCER
     Dosage: 2.5 MG/ DAILY
     Route: 048
     Dates: start: 20080601
  2. CRESTOR [Concomitant]
     Dosage: 10 MG/DAY
  3. PROTELOS [Concomitant]
     Dosage: 1 DF/DAY
  4. KARDEGIC [Concomitant]
     Dosage: 75 MG/DAY
  5. ALDACTONE [Concomitant]
     Dosage: 75 MG/DAY

REACTIONS (1)
  - VISUAL ACUITY REDUCED [None]
